FAERS Safety Report 8243091-2 (Version None)
Quarter: 2012Q1

REPORT INFORMATION
  Report Type: 
  Country: None (occurrence: None)
  Receive Date: 20120329
  Receipt Date: 20120314
  Transmission Date: 20120608
  Serious: Yes (Other)
  Sender: FDA-Public Use
  Company Number: US-ENDO PHARMACEUTICALS INC.-OPER20120376

PATIENT
  Sex: Male

DRUGS (3)
  1. OPANA ER [Suspect]
     Route: 048
     Dates: end: 20120301
  2. OPANA ER [Suspect]
     Indication: PAIN
     Route: 048
     Dates: end: 20120301
  3. OPANA [Suspect]
     Indication: BREAKTHROUGH PAIN
     Dosage: 10 MG
     Dates: end: 20120301

REACTIONS (1)
  - DRUG ABUSE [None]
